FAERS Safety Report 7641744-8 (Version None)
Quarter: 2011Q3

REPORT INFORMATION
  Report Type: 
  Country: None (occurrence: None)
  Receive Date: 20110728
  Receipt Date: 20110718
  Transmission Date: 20111222
  Serious: Yes (Other)
  Sender: FDA-Public Use
  Company Number: DE-TEVA-291987GER

PATIENT
  Age: 12 Year

DRUGS (2)
  1. ASPIRIN [Suspect]
     Route: 048
  2. DICLOFENAC SODIUM [Suspect]
     Route: 048

REACTIONS (2)
  - ANGIOEDEMA [None]
  - URTICARIA [None]
